FAERS Safety Report 24580589 (Version 1)
Quarter: 2024Q4

REPORT INFORMATION
  Report Type: Spontaneous
  Country: US (occurrence: None)
  Receive Date: 20241104
  Receipt Date: 20241104
  Transmission Date: 20250115
  Serious: No
  Sender: Public
  Company Number: None

PATIENT
  Age: 59 Year
  Sex: Female
  Weight: 63.9 kg

DRUGS (1)
  1. TOPIRAMATE [Suspect]
     Active Substance: TOPIRAMATE
     Dates: start: 20240709, end: 20240911

REACTIONS (10)
  - Cognitive disorder [None]
  - Disorientation [None]
  - Confusional state [None]
  - Dialysis membrane reaction [None]
  - Judgement impaired [None]
  - Decreased appetite [None]
  - Memory impairment [None]
  - Fatigue [None]
  - Speech disorder [None]
  - Dysarthria [None]

NARRATIVE: CASE EVENT DATE: 20240801
